FAERS Safety Report 9152756 (Version 1)
Quarter: 2013Q1

REPORT INFORMATION
  Report Type: Spontaneous
  Country: US (occurrence: US)
  Receive Date: 20130308
  Receipt Date: 20130308
  Transmission Date: 20140127
  Serious: No
  Sender: FDA-Public Use
  Company Number: US-ENDO PHARMACEUTICALS INC.-OPCR20122139

PATIENT
  Sex: Male

DRUGS (7)
  1. OPANA ER [Suspect]
     Indication: PAIN
     Route: 048
     Dates: start: 2012
  2. DIAZEPAM 10MG [Concomitant]
     Indication: INSOMNIA
     Route: 048
  3. OXYCODONE [Concomitant]
     Indication: BREAKTHROUGH PAIN
     Route: 048
  4. CYMBALTA [Concomitant]
     Indication: DEPRESSION
     Route: 048
  5. CYMBALTA [Concomitant]
     Indication: PAIN
  6. AMPHETAMINE SALTS [Concomitant]
     Indication: ATTENTION DEFICIT/HYPERACTIVITY DISORDER
     Dosage: UNKNOWN
     Route: 048
  7. IMITREX [Concomitant]
     Indication: MIGRAINE
     Route: 048

REACTIONS (3)
  - Somnambulism [Recovered/Resolved]
  - Withdrawal syndrome [Recovered/Resolved]
  - Hallucination [Recovered/Resolved]
